FAERS Safety Report 21413281 (Version 7)
Quarter: 2022Q4

REPORT INFORMATION
  Report Type: Report from Study
  Country: CO (occurrence: CO)
  Receive Date: 20221006
  Receipt Date: 20221221
  Transmission Date: 20230113
  Serious: Yes (Hospitalization, Disabling, Other)
  Sender: FDA-Public Use
  Company Number: CO-ABBVIE-4132125

PATIENT
  Sex: Male

DRUGS (2)
  1. VENCLEXTA [Suspect]
     Active Substance: VENETOCLAX
     Indication: Acute myeloid leukaemia
     Dosage: FORM STRENGTH: 100 MILLIGRAM
     Route: 048
     Dates: start: 20211122, end: 20221108
  2. DECITABINE [Concomitant]
     Active Substance: DECITABINE
     Indication: Chemotherapy
     Dosage: NOT REPORTED
     Dates: start: 20221123

REACTIONS (15)
  - Bone marrow disorder [Not Recovered/Not Resolved]
  - Vomiting [Recovering/Resolving]
  - Off label use [Recovering/Resolving]
  - Pyrexia [Recovering/Resolving]
  - Constipation [Not Recovered/Not Resolved]
  - Pneumonia [Recovering/Resolving]
  - Thrombocytopenia [Not Recovered/Not Resolved]
  - Abdominal pain [Recovering/Resolving]
  - Muscular weakness [Not Recovered/Not Resolved]
  - Nausea [Not Recovered/Not Resolved]
  - Mobility decreased [Recovering/Resolving]
  - Haemoglobin decreased [Not Recovered/Not Resolved]
  - Diarrhoea [Not Recovered/Not Resolved]
  - Discouragement [Recovered/Resolved]
  - Decreased appetite [Not Recovered/Not Resolved]

NARRATIVE: CASE EVENT DATE: 20220101
